FAERS Safety Report 7761267-5 (Version None)
Quarter: 2011Q3

REPORT INFORMATION
  Report Type: 
  Country: None (occurrence: None)
  Receive Date: 20110920
  Receipt Date: 20110913
  Transmission Date: 20111222
  Serious: Yes (Life-Threatening)
  Sender: FDA-Public Use
  Company Number: JP-CELGENEUS-087-50794-11092027

PATIENT
  Age: 66 Year
  Sex: Male
  Weight: 53 kg

DRUGS (16)
  1. DIOVAN [Concomitant]
     Dosage: 80 MILLIGRAM
     Route: 048
  2. ADALAT [Concomitant]
     Dosage: 20 MILLIGRAM
     Route: 048
  3. RESTAMIN [Concomitant]
     Dosage: 30 MILLIGRAM
     Route: 048
     Dates: start: 20110606, end: 20110610
  4. GLAKAY [Concomitant]
     Dosage: 20 MILLIGRAM
     Route: 048
  5. ACETAMINOPHEN [Concomitant]
     Dosage: 400 MILLIGRAM
     Route: 048
     Dates: start: 20110711, end: 20110715
  6. RESTAMIN [Concomitant]
     Dosage: 30 MILLIGRAM
     Route: 048
     Dates: start: 20110711, end: 20110715
  7. URALYT [Concomitant]
     Dosage: 6 DOSAGE FORMS
     Route: 048
     Dates: start: 20100605, end: 20110611
  8. VIDAZA [Suspect]
     Indication: MYELODYSPLASTIC SYNDROME
     Dosage: 100 MILLIGRAM
     Route: 058
     Dates: start: 20110606, end: 20110610
  9. VIDAZA [Suspect]
     Dosage: 100 MILLIGRAM
     Route: 058
     Dates: start: 20110711, end: 20110715
  10. RABEPRAZOLE SODIUM [Concomitant]
     Dosage: 10 MILLIGRAM
     Route: 048
  11. ACETAMINOPHEN [Concomitant]
     Dosage: 400 MILLIGRAM
     Route: 048
     Dates: start: 20110606, end: 20110610
  12. GRANISETRON HYDROCHLORIDE [Concomitant]
     Dosage: 2 DOSAGE FORMS
     Route: 048
     Dates: start: 20110711, end: 20110715
  13. PRIMOBOLAN-DEPOT INJ [Concomitant]
     Dosage: 45 MILLIGRAM
     Route: 048
     Dates: end: 20110611
  14. FLUCONAZOLE [Concomitant]
     Dosage: 100 MILLIGRAM
     Route: 048
  15. ALLOPURINOL [Concomitant]
     Dosage: 300 MILLIGRAM
     Route: 048
     Dates: start: 20110605, end: 20110611
  16. MAXIPIME [Concomitant]
     Dosage: 4 MILLIGRAM
     Route: 048
     Dates: start: 20110604, end: 20110617

REACTIONS (1)
  - HYPERKALAEMIA [None]
